FAERS Safety Report 8699998 (Version 2)
Quarter: 2012Q4

REPORT INFORMATION
  Report Type: Report from Study
  Country: HR (occurrence: HR)
  Receive Date: 20120802
  Receipt Date: 20121126
  Transmission Date: 20130627
  Serious: Yes (Hospitalization)
  Sender: FDA-Public Use
  Company Number: HR-ROCHE-1095367

PATIENT
  Age: 84 Year
  Sex: Female
  Weight: 73 kg

DRUGS (3)
  1. RITUXIMAB [Suspect]
     Indication: CHRONIC LYMPHOCYTIC LEUKAEMIA
     Dosage: last dose proir to SAE was on 28/Jun/2012
     Route: 042
     Dates: start: 20120427, end: 20120726
  2. CHLORAMBUCIL [Suspect]
     Indication: CHRONIC LYMPHOCYTIC LEUKAEMIA
     Route: 048
     Dates: start: 20120427
  3. SODIUM CHLORIDE [Concomitant]
     Route: 065
     Dates: start: 20120720, end: 20120803

REACTIONS (1)
  - Renal failure acute [Recovered/Resolved]
